FAERS Safety Report 5299360-1 (Version None)
Quarter: 2007Q2

REPORT INFORMATION
  Report Type: 
  Country: None (occurrence: None)
  Receive Date: 20070417
  Receipt Date: 20070403
  Transmission Date: 20071010
  Serious: Yes (Hospitalization)
  Sender: FDA-Public Use
  Company Number: US-ELI_LILLY_AND_COMPANY-US200704000768

PATIENT
  Age: 55 Year
  Sex: Male

DRUGS (7)
  1. CYMBALTA [Suspect]
     Indication: NERVOUSNESS
     Dosage: 30 MG, EACH MORNING
     Route: 048
  2. CYMBALTA [Suspect]
     Dosage: 60 MG, EACH EVENING
     Route: 048
  3. LOTREL [Concomitant]
     Indication: HYPERTENSION
  4. HYDROCHLOROTHIAZIDE [Concomitant]
     Indication: DIURETIC EFFECT
  5. TEGRETOL [Concomitant]
     Indication: NERVOUS SYSTEM DISORDER
     Dosage: 200 MG, OTHER
  6. NEURONTIN [Concomitant]
     Indication: NERVOUS SYSTEM DISORDER
     Dosage: 600 MG, OTHER
  7. ULTRAM [Concomitant]
     Indication: PAIN

REACTIONS (3)
  - BLOOD PRESSURE DECREASED [None]
  - COELIAC DISEASE [None]
  - DIARRHOEA [None]
